FAERS Safety Report 23262794 (Version 2)
Quarter: 2023Q4

REPORT INFORMATION
  Report Type: Report from Study
  Country: CA (occurrence: CA)
  Receive Date: 20231205
  Receipt Date: 20231213
  Transmission Date: 20240109
  Serious: Yes (Hospitalization, Other)
  Sender: FDA-Public Use
  Company Number: CA-AstraZeneca-2023A228911

PATIENT
  Sex: Female
  Weight: 69.9 kg

DRUGS (2)
  1. ENHERTU [Suspect]
     Active Substance: FAM-TRASTUZUMAB DERUXTECAN-NXKI
     Indication: Breast cancer metastatic
     Dosage: 378 MG, ONCE EVERY 3 WK
     Route: 042
     Dates: start: 20230913
  2. ENHERTU [Suspect]
     Active Substance: FAM-TRASTUZUMAB DERUXTECAN-NXKI
     Dosage: 394 MG, ONCE EVERY 3 WK
     Route: 042
     Dates: start: 20230913

REACTIONS (3)
  - Ankle fracture [Unknown]
  - Infection [Unknown]
  - Lower limb fracture [Unknown]
